FAERS Safety Report 10682857 (Version 2)
Quarter: 2015Q1

REPORT INFORMATION
  Report Type: Other
  Country: IT (occurrence: IT)
  Receive Date: 20141230
  Receipt Date: 20150317
  Transmission Date: 20150720
  Serious: Yes (Other)
  Sender: FDA-Public Use
  Company Number: IT-MYLANLABS-2014M1015377

PATIENT

DRUGS (1)
  1. ARKOLAMYL [Suspect]
     Active Substance: OLANZAPINE
     Indication: SCHIZOPHRENIA
     Dosage: 10 MG, QD
     Route: 048
     Dates: start: 20141203, end: 20141216

REACTIONS (5)
  - Drug intolerance [Unknown]
  - Drug ineffective [Unknown]
  - Diarrhoea [Unknown]
  - Sopor [Unknown]
  - Affect lability [Unknown]

NARRATIVE: CASE EVENT DATE: 20141203
